FAERS Safety Report 18999204 (Version 2)
Quarter: 2021Q2

REPORT INFORMATION
  Report Type: Spontaneous
  Country: BR (occurrence: BR)
  Receive Date: 20210311
  Receipt Date: 20210415
  Transmission Date: 20210717
  Serious: Yes (Hospitalization)
  Sender: FDA-Public Use
  Company Number: BR-SA-2021SA072699

PATIENT
  Sex: Female
  Weight: 3.13 kg

DRUGS (2)
  1. CLEXANE [Suspect]
     Active Substance: ENOXAPARIN SODIUM
     Route: 064
  2. ACETYLSALICYLIC ACID [Suspect]
     Active Substance: ASPIRIN
     Route: 064
     Dates: end: 20210214

REACTIONS (5)
  - Foetal exposure during pregnancy [Unknown]
  - Jaundice [Recovered/Resolved]
  - Premature baby [Unknown]
  - Weight gain poor [Unknown]
  - Tachypnoea [Recovered/Resolved]
